FAERS Safety Report 10077799 (Version 3)
Quarter: 2014Q4

REPORT INFORMATION
  Report Type: Report from Study
  Country: MX (occurrence: MX)
  Receive Date: 20140414
  Receipt Date: 20141121
  Transmission Date: 20150528
  Serious: Yes (Hospitalization, Other)
  Sender: FDA-Public Use
  Company Number: PHHY2014MX043700

PATIENT
  Age: 77 Year
  Sex: Female
  Weight: 45 kg

DRUGS (20)
  1. ACIFOL//FOLIC ACID [Concomitant]
     Active Substance: FOLIC ACID
     Dosage: 2 UKN, QD
     Route: 065
  2. MVI [Concomitant]
     Active Substance: VITAMINS
     Dosage: UNK UKN, UNK
     Route: 065
  3. STALEVO [Suspect]
     Active Substance: CARBIDOPA\ENTACAPONE\LEVODOPA
     Indication: MOVEMENT DISORDER
  4. XARELTO [Suspect]
     Active Substance: RIVAROXABAN
     Indication: ANTICOAGULANT THERAPY
     Dosage: 1 DF, QD
     Route: 065
     Dates: start: 2012
  5. OMEPRAZOLE. [Concomitant]
     Active Substance: OMEPRAZOLE
     Indication: GASTRITIS
  6. ACIFOL//FOLIC ACID [Concomitant]
     Active Substance: FOLIC ACID
     Indication: BLOOD DISORDER
     Dosage: 2 UKN, QD
     Route: 065
  7. MVI [Concomitant]
     Active Substance: VITAMINS
     Indication: PRODUCT USED FOR UNKNOWN INDICATION
     Dosage: UNK UKN, UNK
     Route: 065
  8. OMEPRAZOLE. [Concomitant]
     Active Substance: OMEPRAZOLE
     Indication: GASTROOESOPHAGEAL REFLUX DISEASE
     Dosage: 1 DF, QD
     Route: 065
  9. ORTHO NOVUM [Concomitant]
     Indication: PRODUCT USED FOR UNKNOWN INDICATION
     Dosage: UNK UKN, QD
     Route: 065
  10. FERROTEMP [Concomitant]
     Dosage: 1 UKN, QD
     Route: 065
  11. CHLORHEXIDINE GLUCONATE. [Concomitant]
     Active Substance: CHLORHEXIDINE GLUCONATE
     Dosage: UNK UKN, UNK
     Route: 065
  12. STALEVO [Suspect]
     Active Substance: CARBIDOPA\ENTACAPONE\LEVODOPA
     Indication: OFF LABEL USE
  13. LADOGAL [Concomitant]
     Active Substance: DANAZOL
     Dosage: 1 DF, QD
     Route: 065
  14. STALEVO [Suspect]
     Active Substance: CARBIDOPA\ENTACAPONE\LEVODOPA
     Indication: PARKINSON^S DISEASE
     Dosage: 2 DF, QD
     Route: 048
     Dates: start: 2014
  15. XARELTO [Suspect]
     Active Substance: RIVAROXABAN
     Indication: THROMBOSIS
     Dosage: 1 DF, QD
     Route: 065
  16. FERROTEMP [Concomitant]
     Indication: BLOOD DISORDER
     Dosage: 1 UKN, QD
     Route: 065
  17. ORTHO NOVUM [Concomitant]
     Dosage: UNK UKN, QD
     Route: 065
  18. STALEVO [Suspect]
     Active Substance: CARBIDOPA\ENTACAPONE\LEVODOPA
     Indication: SPINAL DISORDER
     Dosage: 2 DF, QD
     Route: 048
  19. LADOGAL [Concomitant]
     Active Substance: DANAZOL
     Indication: BLOOD DISORDER
     Dosage: 1 DF, QD
     Route: 065
     Dates: start: 2010
  20. CHLORHEXIDINE GLUCONATE. [Concomitant]
     Active Substance: CHLORHEXIDINE GLUCONATE
     Indication: PRODUCT USED FOR UNKNOWN INDICATION
     Dosage: UNK UKN, UNK
     Route: 065

REACTIONS (4)
  - Gastric ulcer [Recovered/Resolved]
  - Haematemesis [Recovered/Resolved]
  - Vomiting [Recovered/Resolved]
  - Gastritis [Unknown]

NARRATIVE: CASE EVENT DATE: 20140327
